FAERS Safety Report 18710404 (Version 1)
Quarter: 2021Q1

REPORT INFORMATION
  Report Type: Spontaneous
  Country: US (occurrence: US)
  Receive Date: 20210107
  Receipt Date: 20210107
  Transmission Date: 20210419
  Serious: No
  Sender: FDA-Public Use
  Company Number: US-GLENMARK PHARMACEUTICALS-2020GMK045736

PATIENT

DRUGS (1)
  1. RANITIDINE TABLETS USP, 150 MG [Suspect]
     Active Substance: RANITIDINE HYDROCHLORIDE
     Indication: PRODUCT USED FOR UNKNOWN INDICATION
     Dosage: UNK (START DATE: 2 OR 3 YEARS, UNSPECIFIED)
     Route: 065

REACTIONS (3)
  - Abdominal discomfort [Unknown]
  - Suspected product contamination [Unknown]
  - Dyspepsia [Unknown]
